FAERS Safety Report 8032534-5 (Version None)
Quarter: 2012Q1

REPORT INFORMATION
  Report Type: 
  Country: None (occurrence: None)
  Receive Date: 20120110
  Receipt Date: 20110502
  Transmission Date: 20120608
  Serious: Yes (Other)
  Sender: FDA-Public Use
  Company Number: US-MYLANLABS-2011S1009221

PATIENT
  Sex: Male
  Weight: 79.02 kg

DRUGS (7)
  1. LIPITOR [Suspect]
     Indication: BLOOD CHOLESTEROL INCREASED
     Dates: end: 20070101
  2. LOVASTATIN [Suspect]
     Indication: BLOOD CHOLESTEROL INCREASED
     Route: 048
  3. SIMVASTATIN [Suspect]
     Indication: BLOOD CHOLESTEROL INCREASED
     Route: 048
  4. OMEPRAZOLE [Concomitant]
     Indication: DYSPEPSIA
  5. IBUPROFEN [Concomitant]
     Indication: PAIN
     Dosage: PAIN IN EXTREMITY AND MYALGIA
  6. ASPIRIN [Concomitant]
     Indication: CARDIOVASCULAR EVENT PROPHYLAXIS
  7. GABAPENTIN [Concomitant]
     Indication: PAIN
     Dosage: PAIN IN EXTREMITY AND MYALGIA

REACTIONS (1)
  - DEPRESSION [None]
